FAERS Safety Report 23902524 (Version 1)
Quarter: 2024Q2

REPORT INFORMATION
  Report Type: Spontaneous
  Country: CN (occurrence: CN)
  Receive Date: 20240527
  Receipt Date: 20240527
  Transmission Date: 20240715
  Serious: Yes (Other)
  Sender: FDA-Public Use
  Company Number: CN-PFIZER INC-PV202400066716

PATIENT
  Age: 54 Year
  Sex: Male
  Weight: 80 kg

DRUGS (4)
  1. AVIBACTAM SODIUM\CEFTAZIDIME [Suspect]
     Active Substance: AVIBACTAM SODIUM\CEFTAZIDIME
     Indication: Therapeutic procedure
     Dosage: TIME INTERVAL: 0.33333333 DAYS: 2.5 G, 3X/DAY, EVERY 8 HOURS
     Route: 041
     Dates: start: 20240329, end: 20240408
  2. ETIMICIN SULFATE [Suspect]
     Active Substance: ETIMICIN SULFATE
     Indication: Symptomatic treatment
     Dosage: 300 MG, 1X/DAY
     Route: 041
     Dates: start: 20240329, end: 20240403
  3. VANCOMYCIN HYDROCHLORIDE [Suspect]
     Active Substance: VANCOMYCIN HYDROCHLORIDE
     Indication: Therapeutic procedure
     Dosage: TIME INTERVAL: 0.33333333 DAYS: 0.5 G, 3X/DAY, EVERY 8 HOURS
     Route: 041
     Dates: start: 20240330, end: 20240404
  4. VANCOMYCIN HYDROCHLORIDE [Suspect]
     Active Substance: VANCOMYCIN HYDROCHLORIDE
     Indication: Therapeutic procedure
     Dosage: 1 G, 2X/DAY, EVERY 12 HOURS
     Route: 041
     Dates: start: 20240404, end: 20240409

REACTIONS (1)
  - Hepatic enzyme increased [Recovering/Resolving]

NARRATIVE: CASE EVENT DATE: 20240401
